FAERS Safety Report 7591696-4 (Version None)
Quarter: 2011Q3

REPORT INFORMATION
  Report Type: 
  Country: None (occurrence: None)
  Receive Date: 20110706
  Receipt Date: 20110617
  Transmission Date: 20111222
  Serious: Yes (Hospitalization, Other)
  Sender: FDA-Public Use
  Company Number: US-BAYER-2011-022908

PATIENT
  Age: 20 Year
  Sex: Female
  Weight: 95.238 kg

DRUGS (2)
  1. YAZ [Suspect]
     Indication: CONTRACEPTION
     Dosage: UNK
     Dates: start: 20061001, end: 20071015
  2. YASMIN [Suspect]
     Indication: CONTRACEPTION
     Dosage: UNK
     Dates: start: 20061001, end: 20071015

REACTIONS (4)
  - DYSPEPSIA [None]
  - BILIARY COLIC [None]
  - CHOLELITHIASIS [None]
  - PAIN [None]
